FAERS Safety Report 14904946 (Version 1)
Quarter: 2018Q2

REPORT INFORMATION
  Report Type: Spontaneous
  Country: US (occurrence: US)
  Receive Date: 20180517
  Receipt Date: 20180517
  Transmission Date: 20180711
  Serious: No
  Sender: FDA-Public Use
  Company Number: US-SA-2017SA212954

PATIENT
  Sex: Male

DRUGS (3)
  1. VICTOZA [Concomitant]
     Active Substance: LIRAGLUTIDE
     Route: 065
  2. LANTUS [Suspect]
     Active Substance: INSULIN GLARGINE
     Route: 051
  3. VICTOZA [Concomitant]
     Active Substance: LIRAGLUTIDE
     Dosage: INCREASED DOSE
     Route: 065

REACTIONS (5)
  - Injection site bruising [Unknown]
  - Glycosylated haemoglobin increased [Unknown]
  - Tremor [Unknown]
  - Nausea [Unknown]
  - Diarrhoea [Unknown]
